FAERS Safety Report 4732232-7 (Version None)
Quarter: 2005Q3

REPORT INFORMATION
  Report Type: 
  Country: None (occurrence: None)
  Receive Date: 20050726
  Receipt Date: 20041004
  Transmission Date: 20060218
  Serious: Yes (Hospitalization)
  Sender: FDA-Public Use
  Company Number: 04FRA0233

PATIENT
  Age: 72 Year
  Sex: Female

DRUGS (4)
  1. AGGRASTAT [Suspect]
     Indication: ANGINA UNSTABLE
     Dosage: 0.2 MCG/KG/MIN FOLLOWED BY 0.05 MCG/KG/MIN
  2. ASPIRIN [Concomitant]
  3. ENOXAPARIN SODIUM [Concomitant]
  4. HEPARIN [Concomitant]

REACTIONS (1)
  - THROMBOCYTOPENIA [None]
